FAERS Safety Report 8830789 (Version 3)
Quarter: 2012Q4

REPORT INFORMATION
  Report Type: Report from Study
  Country: US (occurrence: US)
  Receive Date: 20121009
  Receipt Date: 20121226
  Transmission Date: 20130627
  Serious: Yes (Hospitalization)
  Sender: FDA-Public Use
  Company Number: US-SANOFI-AVENTIS-2012SA051078

PATIENT
  Age: 77 Year
  Sex: Male
  Weight: 69 kg

DRUGS (13)
  1. TAXOTERE [Suspect]
     Indication: NON-SMALL CELL LUNG CANCER STAGE IV
     Dosage: day 1 of 21 day cycle
     Route: 041
     Dates: start: 20120607, end: 20120607
  2. TAXOTERE [Suspect]
     Indication: NON-SMALL CELL LUNG CANCER STAGE IV
     Dosage: day 1 of 21 day cycle
     Route: 041
     Dates: start: 20120628, end: 20120628
  3. BLINDED THERAPY [Suspect]
     Indication: NON-SMALL CELL LUNG CANCER STAGE IV
     Dosage: day 1 of 21 day cycle
     Route: 042
     Dates: start: 20120628, end: 20120628
  4. BLINDED THERAPY [Suspect]
     Indication: NON-SMALL CELL LUNG CANCER STAGE IV
     Dosage: day 1 of 21 day cycle
     Route: 042
     Dates: start: 20120607, end: 20120607
  5. PANTOPRAZOLE [Concomitant]
     Indication: GASTROESOPHAGEAL REFLUX DISEASE
     Dates: start: 20120607
  6. AMLODIPINE [Concomitant]
     Indication: BLOOD PRESSURE
     Dates: start: 20120607
  7. LEVOTHYROXINE [Concomitant]
     Dates: start: 20120607
  8. PRO-AIR [Concomitant]
     Dates: start: 20120607
  9. SPIRIVA [Concomitant]
     Dates: start: 20120607
  10. ADVAIR [Concomitant]
     Dates: start: 20120607
  11. SINGULAIR [Concomitant]
     Indication: CHRONIC OBSTRUCTIVE PULMONARY DISEASE
     Dates: start: 20120614
  12. VICODIN [Concomitant]
     Indication: PAIN
     Dates: start: 20120607
  13. DEXAMETHASONE [Concomitant]
     Indication: NAUSEA
     Dates: start: 20120531

REACTIONS (1)
  - Chronic obstructive pulmonary disease [Recovered/Resolved]
